FAERS Safety Report 11062177 (Version 2)
Quarter: 2015Q2

REPORT INFORMATION
  Report Type: Spontaneous
  Country: GR (occurrence: GR)
  Receive Date: 20150424
  Receipt Date: 20150511
  Transmission Date: 20150821
  Serious: Yes (Death, Hospitalization)
  Sender: FDA-Public Use
  Company Number: GR-JNJFOC-20150416444

PATIENT
  Age: 7 Year
  Sex: Male

DRUGS (2)
  1. TOPAMAC [Suspect]
     Active Substance: TOPIRAMATE
     Indication: EPILEPSY
     Route: 048
     Dates: start: 2009
  2. ZONEGRAN [Suspect]
     Active Substance: ZONISAMIDE
     Indication: EPILEPSY
     Route: 048

REACTIONS (2)
  - Respiratory tract infection [Fatal]
  - Splenomegaly [Not Recovered/Not Resolved]
